FAERS Safety Report 8394176-1 (Version None)
Quarter: 2012Q2

REPORT INFORMATION
  Report Type: 
  Country: None (occurrence: None)
  Receive Date: 20120530
  Receipt Date: 20120522
  Transmission Date: 20120825
  Serious: Yes (Other)
  Sender: FDA-Public Use
  Company Number: PHHY2012NZ045087

PATIENT
  Age: 73 Year
  Sex: Female

DRUGS (5)
  1. OMEPRAZOLE [Suspect]
     Indication: BARRETT'S OESOPHAGUS
     Dosage: 20 MG DAILY
  2. DILTIAZEM [Concomitant]
  3. VALPROIC ACID [Suspect]
     Indication: PAIN MANAGEMENT
  4. CLONAZEPAM [Concomitant]
  5. CILAZAPRIL [Concomitant]

REACTIONS (12)
  - NAUSEA [None]
  - DEHYDRATION [None]
  - ANAEMIA [None]
  - RENAL ATROPHY [None]
  - VOMITING [None]
  - WEIGHT DECREASED [None]
  - RENAL IMPAIRMENT [None]
  - TUBULOINTERSTITIAL NEPHRITIS [None]
  - LETHARGY [None]
  - PYURIA [None]
  - ANTINEUTROPHIL CYTOPLASMIC ANTIBODY POSITIVE [None]
  - RENAL CYST [None]
